FAERS Safety Report 10812155 (Version 1)
Quarter: 2015Q1

REPORT INFORMATION
  Report Type: Spontaneous
  Country: US (occurrence: None)
  Receive Date: 20150212
  Receipt Date: 20150212
  Transmission Date: 20150721
  Serious: Yes (Other)
  Sender: FDA-Public Use
  Company Number: None

PATIENT

DRUGS (2)
  1. XGEVA [Suspect]
     Active Substance: DENOSUMAB
     Indication: PROPHYLAXIS
     Route: 030
     Dates: start: 20140409, end: 20140509
  2. XGEVA [Suspect]
     Active Substance: DENOSUMAB
     Indication: FRACTURE
     Route: 030
     Dates: start: 20140409, end: 20140509

REACTIONS (2)
  - Pleural effusion [None]
  - Metastases to lung [None]

NARRATIVE: CASE EVENT DATE: 20140410
